FAERS Safety Report 10484245 (Version 3)
Quarter: 2015Q2

REPORT INFORMATION
  Report Type: Spontaneous
  Country: JP (occurrence: JP)
  Receive Date: 20140930
  Receipt Date: 20150526
  Transmission Date: 20150821
  Serious: Yes (Hospitalization)
  Sender: FDA-Public Use
  Company Number: PHHY2014JP124707

PATIENT
  Age: 67 Year
  Sex: Male

DRUGS (4)
  1. NEORAL [Suspect]
     Active Substance: CYCLOSPORINE
     Dosage: 25 MG, QD
     Route: 048
     Dates: end: 20130902
  2. DOVONEX [Concomitant]
     Active Substance: CALCIPOTRIENE
     Indication: PRODUCT USED FOR UNKNOWN INDICATION
     Route: 065
  3. NEORAL [Suspect]
     Active Substance: CYCLOSPORINE
     Indication: PSORIASIS
     Dosage: 200 MG, QD
     Route: 048
     Dates: start: 2007
  4. DERMOVATE [Concomitant]
     Active Substance: CLOBETASOL
     Indication: PRODUCT USED FOR UNKNOWN INDICATION
     Dosage: UNK
     Route: 065

REACTIONS (1)
  - Gastric cancer [Recovering/Resolving]

NARRATIVE: CASE EVENT DATE: 201308
